FAERS Safety Report 15634362 (Version 2)
Quarter: 2018Q4

REPORT INFORMATION
  Report Type: Spontaneous
  Country: US (occurrence: US)
  Receive Date: 20181119
  Receipt Date: 20181207
  Transmission Date: 20190205
  Serious: No
  Sender: FDA-Public Use
  Company Number: US-PFIZER INC-2018460607

PATIENT
  Age: 63 Year
  Sex: Female
  Weight: 49.9 kg

DRUGS (2)
  1. ADVIL PM [Suspect]
     Active Substance: DIPHENHYDRAMINE CITRATE\IBUPROFEN
     Indication: SLEEP DISORDER
     Dosage: 400 MG, 1X/DAY(TWO 200MG, NIGHTLY)
     Route: 048
     Dates: start: 20181103
  2. OXYCODONE [Concomitant]
     Active Substance: OXYCODONE
     Indication: INTERVERTEBRAL DISC PROTRUSION
     Dosage: 2 DF, DAILY (5-325MG, TABLETS, TWO A DAY)
     Route: 048
     Dates: start: 20181029

REACTIONS (3)
  - Drug ineffective [Unknown]
  - Poor quality sleep [Unknown]
  - Pain [Unknown]

NARRATIVE: CASE EVENT DATE: 20181103
